FAERS Safety Report 4982943-3 (Version None)
Quarter: 2006Q2

REPORT INFORMATION
  Report Type: 
  Country: None (occurrence: None)
  Receive Date: 20060420
  Receipt Date: 20060407
  Transmission Date: 20061013
  Serious: Yes (Other)
  Sender: FDA-Public Use
  Company Number: 001-0945-970517

PATIENT
  Age: 54 Year
  Sex: Female

DRUGS (16)
  1. NEURONTIN [Suspect]
     Indication: ILL-DEFINED DISORDER
     Dosage: 2000 MG (1 D), ORAL
     Route: 048
     Dates: start: 19970625
  2. VASOTEC [Concomitant]
  3. DILANTIN [Concomitant]
  4. CARDIZEM [Concomitant]
  5. THEO-DUR [Concomitant]
  6. I.V. SOLUTIONS (I.V. SOLUTIONS) [Concomitant]
  7. VICODIN [Concomitant]
  8. PROTONIX [Concomitant]
  9. NITROGLYCERIN [Concomitant]
  10. MULTIVITAMIN [Concomitant]
  11. ALL OTHER THERAPEUTIC PRODUCTS (ALL OTHER THERAPEUTIC PRODUCTS) [Concomitant]
  12. ALLUPENT (ORCIPRENALINE SULFATE) [Concomitant]
  13. PHENOBARBITAL TAB [Concomitant]
  14. LASIX [Concomitant]
  15. RESTORIL [Concomitant]
  16. ATIVAN [Concomitant]

REACTIONS (15)
  - AORTIC ANEURYSM [None]
  - CONDITION AGGRAVATED [None]
  - EPISTAXIS [None]
  - FALL [None]
  - FEELING ABNORMAL [None]
  - HYPONATRAEMIA [None]
  - HYPOTHYROIDISM [None]
  - INFECTION [None]
  - LEG AMPUTATION [None]
  - MENIERE'S DISEASE [None]
  - MULTIPLE FRACTURES [None]
  - OEDEMA PERIPHERAL [None]
  - OSTEOPOROSIS [None]
  - PHANTOM PAIN [None]
  - STAPHYLOCOCCAL INFECTION [None]
